FAERS Safety Report 21014965 (Version 1)
Quarter: 2022Q2

REPORT INFORMATION
  Report Type: Other
  Country: CA (occurrence: CA)
  Receive Date: 20220628
  Receipt Date: 20220628
  Transmission Date: 20220721
  Serious: Yes (Hospitalization, Other)
  Sender: FDA-Public Use
  Company Number: CA-CELLTRION INC.-2022CA009798

PATIENT

DRUGS (32)
  1. RITUXIMAB [Suspect]
     Active Substance: RITUXIMAB
     Indication: Pemphigus
     Dosage: 1000 MILLIGRAM
     Route: 042
  2. ACETAMINOPHEN [Concomitant]
     Active Substance: ACETAMINOPHEN
     Route: 065
  3. ASPIRIN [Concomitant]
     Active Substance: ASPIRIN
  4. ALLOPURINOL [Concomitant]
     Active Substance: ALLOPURINOL
  5. AMLODIPINE [Concomitant]
     Active Substance: AMLODIPINE BESYLATE
  6. ARTHROTEC [Concomitant]
     Active Substance: DICLOFENAC SODIUM\MISOPROSTOL
  7. ATORVASTATIN [Concomitant]
     Active Substance: ATORVASTATIN
     Route: 048
  8. BENADRYL [Concomitant]
     Active Substance: DIPHENHYDRAMINE HYDROCHLORIDE
     Indication: Premedication
     Dosage: 50 MILLIGRAM
     Route: 048
  9. BETAMETHASONE [Concomitant]
     Active Substance: BETAMETHASONE
  10. CANDESARTAN [Concomitant]
     Active Substance: CANDESARTAN
  11. DEXILANT [Concomitant]
     Active Substance: DEXLANSOPRAZOLE
  12. FLUCONAZOLE [Concomitant]
     Active Substance: FLUCONAZOLE
  13. FUROSEMIDE [Concomitant]
     Active Substance: FUROSEMIDE
     Route: 065
  14. GLYBURIDE [Concomitant]
     Active Substance: GLYBURIDE
  15. LOPERAMIDE [Concomitant]
     Active Substance: LOPERAMIDE
  16. LORAZEPAM [Concomitant]
     Active Substance: LORAZEPAM
     Route: 065
  17. POLYETHYLENE GLYCOLS [Concomitant]
     Active Substance: POLYETHYLENE GLYCOLS
  18. METHYLPREDNISOLONE SODIUM SUCCINATE [Concomitant]
     Active Substance: METHYLPREDNISOLONE SODIUM SUCCINATE
     Indication: Premedication
     Dosage: 100 MILLIGRAM
     Route: 042
  19. METOPROLOL [Concomitant]
     Active Substance: METOPROLOL
  20. MOMETASONE FUROATE [Concomitant]
     Active Substance: MOMETASONE FUROATE
  21. MYCOPHENOLIC ACID [Concomitant]
     Active Substance: MYCOPHENOLIC ACID
     Indication: Pemphigus
     Dosage: 1080 MILLIGRAM, 2 EVERY 1 DAYS
  22. NESINA [Concomitant]
     Active Substance: ALOGLIPTIN BENZOATE
  23. NITROGLYCERIN [Concomitant]
     Active Substance: NITROGLYCERIN
  24. NOVORAPID [Concomitant]
     Active Substance: INSULIN ASPART
     Indication: Product used for unknown indication
  25. PREDNISONE [Concomitant]
     Active Substance: PREDNISONE
  26. PREGABALIN [Concomitant]
     Active Substance: PREGABALIN
  27. RISEDRONATE SODIUM [Concomitant]
     Active Substance: RISEDRONATE SODIUM
  28. ALBUTEROL [Concomitant]
     Active Substance: ALBUTEROL
  29. SYNTHROID [Concomitant]
     Active Substance: LEVOTHYROXINE SODIUM
  30. TRAMADOL [Concomitant]
     Active Substance: TRAMADOL
  31. TYLENOL [Concomitant]
     Active Substance: ACETAMINOPHEN
  32. VITAMIN D3 [Concomitant]
     Active Substance: CHOLECALCIFEROL

REACTIONS (3)
  - Sepsis [Unknown]
  - Diarrhoea [Unknown]
  - Urinary tract infection [Unknown]
